FAERS Safety Report 20635765 (Version 1)
Quarter: 2022Q1

REPORT INFORMATION
  Report Type: Report from Study
  Country: DE (occurrence: None)
  Receive Date: 20220325
  Receipt Date: 20220325
  Transmission Date: 20220423
  Serious: No
  Sender: FDA-Public Use
  Company Number: DE-Spark Therapeutics, Inc.-DE-SPK-21-00093

PATIENT
  Age: 32 Year
  Sex: Male

DRUGS (4)
  1. VORETIGENE NEPARVOVEC [Suspect]
     Active Substance: VORETIGENE NEPARVOVEC
     Indication: RPE65 gene mutation
     Dates: start: 20210106, end: 20210106
  2. VORETIGENE NEPARVOVEC [Suspect]
     Active Substance: VORETIGENE NEPARVOVEC
     Dates: start: 20210224, end: 20210224
  3. VORETIGENE NEPARVOVEC [Suspect]
     Active Substance: VORETIGENE NEPARVOVEC
     Indication: RPE65 gene mutation
     Dates: start: 20210106, end: 20210106
  4. VORETIGENE NEPARVOVEC [Suspect]
     Active Substance: VORETIGENE NEPARVOVEC
     Dates: start: 20210224, end: 20210224

REACTIONS (3)
  - Cataract [Recovered/Resolved]
  - Retinal degeneration [Recovered/Resolved]
  - Retinal degeneration [Recovered/Resolved]

NARRATIVE: CASE EVENT DATE: 20210106
